FAERS Safety Report 24998267 (Version 1)
Quarter: 2025Q1

REPORT INFORMATION
  Report Type: Spontaneous
  Country: US (occurrence: US)
  Receive Date: 20250222
  Receipt Date: 20250222
  Transmission Date: 20250408
  Serious: No
  Sender: SANOFI AVENTIS
  Company Number: US-SA-2025SA047070

PATIENT
  Age: 59 Year
  Sex: Female

DRUGS (1)
  1. DUPIXENT [Suspect]
     Active Substance: DUPILUMAB
     Indication: Ectopic pregnancy
     Dosage: 300 MG, QOW
     Route: 058

REACTIONS (3)
  - Eye haemorrhage [Unknown]
  - Dry eye [Unknown]
  - Product use in unapproved indication [Unknown]
